FAERS Safety Report 24151762 (Version 1)
Quarter: 2024Q3

REPORT INFORMATION
  Report Type: Spontaneous
  Country: US (occurrence: None)
  Receive Date: 20240729
  Receipt Date: 20240729
  Transmission Date: 20241016
  Serious: Yes (Other)
  Sender: Public
  Company Number: None

PATIENT
  Age: 44 Year
  Sex: Male
  Weight: 58 kg

DRUGS (1)
  1. OLANZAPINE [Suspect]
     Active Substance: OLANZAPINE
     Indication: Depression
     Dosage: FREQUENCY : AT BEDTIME;?
     Route: 048
     Dates: start: 20240509, end: 20240515

REACTIONS (1)
  - Musculoskeletal stiffness [None]

NARRATIVE: CASE EVENT DATE: 20240515
